FAERS Safety Report 11279025 (Version 1)
Quarter: 2015Q3

REPORT INFORMATION
  Report Type: Spontaneous
  Country: DE (occurrence: None)
  Receive Date: 20150715
  Receipt Date: 20150715
  Transmission Date: 20151125
  Serious: Yes (Hospitalization, Other)
  Sender: FDA-Public Use
  Company Number: CO-LA-DE-2015-023

PATIENT
  Age: 83 Year
  Sex: Female

DRUGS (1)
  1. DIGOXIN (UNKNOWN) (DIGOXIN) [Suspect]
     Active Substance: DIGOXIN
     Indication: PRODUCT USED FOR UNKNOWN INDICATION

REACTIONS (2)
  - Chest discomfort [None]
  - Electrocardiogram ST segment depression [None]
